FAERS Safety Report 6244284-6 (Version None)
Quarter: 2009Q2

REPORT INFORMATION
  Report Type: 
  Country: None (occurrence: None)
  Receive Date: 20090625
  Receipt Date: 20090617
  Transmission Date: 20091009
  Serious: Yes (Death, Other)
  Sender: FDA-Public Use
  Company Number: NL-B.I. PHARMACEUTICALS,INC./RIDGEFIELD-2009-DE-01739GD

PATIENT

DRUGS (2)
  1. NEVIRAPINE [Suspect]
     Indication: HIV INFECTION
  2. ANTIRETROVIRAL DRUGS [Suspect]
     Indication: HIV INFECTION

REACTIONS (11)
  - DEATH [None]
  - DRUG TOXICITY [None]
  - GASTROINTESTINAL DISORDER [None]
  - HEPATITIS [None]
  - HEPATOTOXICITY [None]
  - HYPERSENSITIVITY [None]
  - LACTIC ACIDOSIS [None]
  - NERVOUS SYSTEM DISORDER [None]
  - PANCREATIC DISORDER [None]
  - RASH [None]
  - RENAL DISORDER [None]
